FAERS Safety Report 21663724 (Version 1)
Quarter: 2022Q4

REPORT INFORMATION
  Report Type: Spontaneous
  Country: CN (occurrence: None)
  Receive Date: 20221130
  Receipt Date: 20221130
  Transmission Date: 20230113
  Serious: Yes (Hospitalization)
  Sender: FDA-Public Use
  Company Number: 2022A389333

PATIENT
  Age: 43 Year
  Sex: Female
  Weight: 75 kg

DRUGS (3)
  1. DAPAGLIFLOZIN [Suspect]
     Active Substance: DAPAGLIFLOZIN
     Indication: Diabetes mellitus
     Route: 048
     Dates: start: 20221107, end: 20221109
  2. SEMAGLUTIDE [Concomitant]
     Active Substance: SEMAGLUTIDE
     Indication: Diabetes mellitus
     Route: 058
     Dates: start: 20221107, end: 20221109
  3. METFORMIN HYDROCHLORIDE [Concomitant]
     Active Substance: METFORMIN HYDROCHLORIDE
     Indication: Diabetes mellitus
     Route: 048
     Dates: start: 20221107, end: 20221109

REACTIONS (3)
  - Urine ketone body present [Recovered/Resolved]
  - Blood ketone body present [Recovered/Resolved]
  - Mental fatigue [Unknown]

NARRATIVE: CASE EVENT DATE: 20221109
